FAERS Safety Report 7384415-8 (Version None)
Quarter: 2011Q1

REPORT INFORMATION
  Report Type: 
  Country: None (occurrence: None)
  Receive Date: 20110323
  Receipt Date: 20110310
  Transmission Date: 20110831
  Serious: Yes (Other)
  Sender: FDA-Public Use
  Company Number: US-000160

PATIENT
  Age: 81 Year
  Sex: Male
  Weight: 60.3284 kg

DRUGS (9)
  1. MAALOX 00091001/ [Concomitant]
  2. ACYCLOVIR [Concomitant]
  3. ZENPEP [Suspect]
     Indication: PANCREATITIS
     Dosage: 20000 IU TID ORAL
     Route: 048
     Dates: start: 20100901
  4. PROPOXYPHENE HYDROCHLORIDE [Concomitant]
  5. DOCUSATE [Concomitant]
  6. SENNA [Concomitant]
  7. TRAMADOL [Concomitant]
  8. SIMVASTATIN [Concomitant]
  9. PROTONIX [Concomitant]

REACTIONS (7)
  - RASH ERYTHEMATOUS [None]
  - BURNING SENSATION [None]
  - MYOCARDIAL INFARCTION [None]
  - INSOMNIA [None]
  - ABDOMINAL PAIN UPPER [None]
  - DRUG INEFFECTIVE [None]
  - COLONIC POLYP [None]
